FAERS Safety Report 18807918 (Version 1)
Quarter: 2021Q1

REPORT INFORMATION
  Report Type: Spontaneous
  Country: US (occurrence: US)
  Receive Date: 20210129
  Receipt Date: 20210129
  Transmission Date: 20210419
  Serious: Yes (Hospitalization)
  Sender: FDA-Public Use
  Company Number: US-SUNOVION-2021SUN000189

PATIENT
  Age: 82 Year
  Sex: Female

DRUGS (1)
  1. LONHALA MAGNAIR [Suspect]
     Active Substance: GLYCOPYRROLATE
     Dosage: 25 ?G
     Route: 055

REACTIONS (7)
  - Constipation [Unknown]
  - Electrocardiogram abnormal [Unknown]
  - Nervousness [Unknown]
  - Illness [Unknown]
  - Cough [Unknown]
  - Vomiting [Unknown]
  - Gastroenteritis viral [Unknown]
